FAERS Safety Report 15454447 (Version 1)
Quarter: 2018Q3

REPORT INFORMATION
  Report Type: Spontaneous
  Country: US (occurrence: US)
  Receive Date: 20180927
  Receipt Date: 20180927
  Transmission Date: 20181010
  Serious: Yes (Other)
  Sender: FDA-Public Use
  Company Number: None

PATIENT
  Age: 74 Year
  Sex: Female
  Weight: 60.33 kg

DRUGS (10)
  1. TRAVOPROST. [Concomitant]
     Active Substance: TRAVOPROST
  2. ALPHAGAN P [Concomitant]
     Active Substance: BRIMONIDINE TARTRATE
  3. ONE?A?DAY NOS [Concomitant]
     Active Substance: MINERALS\VITAMINS
  4. COSOPT [Concomitant]
     Active Substance: DORZOLAMIDE HYDROCHLORIDE\TIMOLOL MALEATE
  5. VITAMIN B [Concomitant]
     Active Substance: VITAMIN B
  6. BRIMONIDINE TARTRATE OPHTHALMIC SOLUTION 0.2% [Suspect]
     Active Substance: BRIMONIDINE TARTRATE
     Indication: GLAUCOMA
     Dosage: ?          QUANTITY:1 GTT DROP(S);?
     Dates: start: 20180808, end: 20180829
  7. TIMOLOL. [Concomitant]
     Active Substance: TIMOLOL
  8. TRAVATAN [Concomitant]
     Active Substance: TRAVOPROST
  9. DORZOLAMIDE [Concomitant]
     Active Substance: DORZOLAMIDE
  10. VITAMIN C [Concomitant]
     Active Substance: ASCORBIC ACID

REACTIONS (3)
  - Fatigue [None]
  - Blood pressure decreased [None]
  - Depression [None]

NARRATIVE: CASE EVENT DATE: 20180826
